FAERS Safety Report 5099817-2 (Version None)
Quarter: 2006Q3

REPORT INFORMATION
  Report Type: 
  Country: None (occurrence: None)
  Receive Date: 20060906
  Receipt Date: 20060831
  Transmission Date: 20061208
  Serious: Yes (Life-Threatening)
  Sender: FDA-Public Use
  Company Number: CAR-2006-020

PATIENT
  Age: 79 Year
  Sex: Male

DRUGS (1)
  1. SUCRALFATE [Suspect]
     Dosage: 4 G /DAY
     Dates: start: 20051012, end: 20051014

REACTIONS (1)
  - LARYNGEAL OEDEMA [None]
